FAERS Safety Report 19982707 (Version 1)
Quarter: 2021Q4

REPORT INFORMATION
  Report Type: Spontaneous
  Country: US (occurrence: US)
  Receive Date: 20211022
  Receipt Date: 20211022
  Transmission Date: 20220303
  Serious: Yes (Other)
  Sender: FDA-Public Use
  Company Number: US-SA-SAC20211019000313

PATIENT
  Age: 64 Year
  Sex: Female

DRUGS (9)
  1. DUPIXENT [Suspect]
     Active Substance: DUPILUMAB
     Indication: Dermatitis atopic
     Dosage: 300 MG, QOW
     Route: 058
     Dates: start: 20210528
  2. TRIAMCINOLONE ACETONIDE [Suspect]
     Active Substance: TRIAMCINOLONE ACETONIDE
  3. PANTOPRAZOLE [Suspect]
     Active Substance: PANTOPRAZOLE
  4. HYDROXYZINE HYDROCHLORIDE [Suspect]
     Active Substance: HYDROXYZINE HYDROCHLORIDE
  5. ESTRADIOL [Concomitant]
     Active Substance: ESTRADIOL
  6. INTRAROSA [Concomitant]
     Active Substance: PRASTERONE
  7. LOSARTAN [Concomitant]
     Active Substance: LOSARTAN
     Indication: Hypertension
  8. RABEPRAZOLE [Concomitant]
     Active Substance: RABEPRAZOLE
  9. TROSPIUM [Concomitant]
     Active Substance: TROSPIUM

REACTIONS (2)
  - Haemorrhagic diathesis [Not Recovered/Not Resolved]
  - Increased tendency to bruise [Not Recovered/Not Resolved]

NARRATIVE: CASE EVENT DATE: 20210913
